FAERS Safety Report 5606201-9 (Version None)
Quarter: 2008Q1

REPORT INFORMATION
  Report Type: 
  Country: None (occurrence: None)
  Receive Date: 20080129
  Receipt Date: 20070131
  Transmission Date: 20080703
  Serious: No
  Sender: FDA-Public Use
  Company Number: A0637814A

PATIENT
  Sex: Female

DRUGS (1)
  1. WELLBUTRIN [Suspect]
     Indication: DRUG USE FOR UNKNOWN INDICATION
     Dosage: 300MG UNKNOWN
     Route: 048
     Dates: start: 20070101, end: 20070101

REACTIONS (6)
  - DIARRHOEA [None]
  - ERYTHEMA [None]
  - FATIGUE [None]
  - PRURITUS [None]
  - TREMOR [None]
  - URTICARIA [None]
